FAERS Safety Report 24701559 (Version 1)
Quarter: 2024Q4

REPORT INFORMATION
  Report Type: Other
  Country: FR (occurrence: FR)
  Receive Date: 20241205
  Receipt Date: 20241205
  Transmission Date: 20250115
  Serious: Yes (Life-Threatening)
  Sender: FENNEC PHARMACEUTICALS
  Company Number: FR-FENNEC PHARMACEUTICALS, INC.-2024FEN00074

PATIENT
  Age: 59 Year
  Sex: Female
  Weight: 85 kg

DRUGS (3)
  1. SODIUM THIOSULFATE [Suspect]
     Active Substance: SODIUM THIOSULFATE
     Indication: Hyperthermic chemotherapy
     Dosage: 17 MG, TOTAL
     Route: 042
     Dates: start: 20241001, end: 20241001
  2. SODIUM THIOSULFATE [Suspect]
     Active Substance: SODIUM THIOSULFATE
     Dosage: 219 MG, TOTAL
     Route: 042
     Dates: start: 20241001, end: 20241001
  3. CISPLATIN [Suspect]
     Active Substance: CISPLATIN
     Indication: Ovarian cancer stage III
     Dosage: 188 MG, TOTAL (CONCENTRATE FOR INFUSION)
     Route: 033
     Dates: start: 20241001, end: 20241001

REACTIONS (3)
  - Atrioventricular block second degree [Recovered/Resolved]
  - Hypophosphataemia [Recovered/Resolved]
  - Off label use [Unknown]

NARRATIVE: CASE EVENT DATE: 20241001
